FAERS Safety Report 6958622-X (Version None)
Quarter: 2010Q3

REPORT INFORMATION
  Report Type: 
  Country: None (occurrence: None)
  Receive Date: 20100831
  Receipt Date: 20100823
  Transmission Date: 20110219
  Serious: Yes (Hospitalization)
  Sender: FDA-Public Use
  Company Number: DE-ROCHE-723996

PATIENT
  Sex: Male
  Weight: 77 kg

DRUGS (6)
  1. TOCILIZUMAB [Suspect]
     Indication: RHEUMATOID ARTHRITIS
     Route: 042
     Dates: start: 20091125
  2. PREDNISOLONE [Suspect]
     Indication: RHEUMATOID ARTHRITIS
     Route: 048
     Dates: start: 19870101
  3. CALCIUM/VITAMIN D3 [Suspect]
     Indication: OSTEOPOROSIS PROPHYLAXIS
     Route: 048
     Dates: start: 20080101
  4. RAMIPRIL [Suspect]
     Indication: HYPERTENSION
     Route: 048
  5. FOLIC ACID [Suspect]
     Route: 048
  6. METEX [Suspect]
     Indication: RHEUMATOID ARTHRITIS
     Route: 058
     Dates: start: 19890101

REACTIONS (1)
  - ABDOMINAL HERNIA [None]
